FAERS Safety Report 17015637 (Version 2)
Quarter: 2020Q4

REPORT INFORMATION
  Report Type: Spontaneous
  Country: US (occurrence: US)
  Receive Date: 20191111
  Receipt Date: 20201020
  Transmission Date: 20210113
  Serious: Yes (Hospitalization, Other)
  Sender: FDA-Public Use
  Company Number: US-PFIZER INC-2019481158

PATIENT
  Age: 81 Year
  Sex: Female
  Weight: 72.57 kg

DRUGS (4)
  1. PRAVASTATIN. [Concomitant]
     Active Substance: PRAVASTATIN
     Indication: HYPERTENSION
     Dosage: UNK
  2. ASPIRIN [ACETYLSALICYLIC ACID] [Concomitant]
     Active Substance: ASPIRIN
     Dosage: 81 MG, DAILY (81 MG PER DAY)
  3. LYRICA [Suspect]
     Active Substance: PREGABALIN
     Indication: NEUROPATHY PERIPHERAL
     Dosage: 25 MG, 3X/DAY
     Route: 048
  4. LOSARTAN. [Concomitant]
     Active Substance: LOSARTAN
     Dosage: UNK

REACTIONS (8)
  - Oropharyngeal pain [Unknown]
  - Gait disturbance [Unknown]
  - Onychomycosis [Unknown]
  - Fall [Unknown]
  - SARS-CoV-2 test positive [Not Recovered/Not Resolved]
  - Cough [Unknown]
  - Cerebrovascular accident [Unknown]
  - Kidney infection [Unknown]

NARRATIVE: CASE EVENT DATE: 201809
